FAERS Safety Report 5068185-4 (Version None)
Quarter: 2006Q3

REPORT INFORMATION
  Report Type: 
  Country: None (occurrence: None)
  Receive Date: 20060802
  Receipt Date: 20030314
  Transmission Date: 20061208
  Serious: No
  Sender: FDA-Public Use
  Company Number: US-BRISTOL-MYERS SQUIBB COMPANY-12212411

PATIENT
  Age: 66 Year
  Sex: Female
  Weight: 54 kg

DRUGS (13)
  1. COUMADIN [Suspect]
     Indication: THROMBOSIS
     Dosage: 2.5MG/D FOR 5 YRS; 2.5MG/D ON WKDAYS AND 1/2TAB WKENDS FOR SEVERAL YRS STOPPED 2/28/03 + RESTARTED
     Route: 048
  2. ZANTAC [Concomitant]
     Indication: GASTRIC DISORDER
  3. LIPITOR [Concomitant]
     Indication: BLOOD CHOLESTEROL INCREASED
     Dosage: DURATIION OF THERAPY:  3 TO 4 YEARS
  4. PLETAL [Concomitant]
  5. PROTONIX [Concomitant]
     Dates: start: 20030304
  6. PROZAC [Concomitant]
  7. DALMANE [Concomitant]
     Indication: INSOMNIA
     Dosage: DOSE TAKEN AT BEDTIME FOR A ^LONGTIME.^
  8. CALCIUM CITRATE [Concomitant]
     Dosage: DURATION OF THERAPY:  ^LONG TIME^
  9. VITAMIN E [Concomitant]
  10. CHONDROITIN SULFATE + GLUCOSAMINE [Concomitant]
  11. ASCORBIC ACID [Concomitant]
     Dosage: DURATION OF THERAPY: YEARS
  12. CENTRUM SILVER [Concomitant]
     Dosage: DURATION OF THERAPY: YEARS
  13. VITAMINS [Concomitant]

REACTIONS (4)
  - BLOOD URINE PRESENT [None]
  - CYSTITIS [None]
  - HAEMATOMA [None]
  - INTERNATIONAL NORMALISED RATIO ABNORMAL [None]
